FAERS Safety Report 18919481 (Version 1)
Quarter: 2021Q1

REPORT INFORMATION
  Report Type: Spontaneous
  Country: US (occurrence: US)
  Receive Date: 20210221
  Receipt Date: 20210221
  Transmission Date: 20210420
  Serious: No
  Sender: FDA-Public Use
  Company Number: US-SA-2021SA055288

PATIENT
  Sex: Male

DRUGS (3)
  1. DUPIXENT [Suspect]
     Active Substance: DUPILUMAB
     Dosage: 300 MG, QOW
  2. DDI [Concomitant]
     Active Substance: DIDANOSINE
  3. DUPIXENT [Suspect]
     Active Substance: DUPILUMAB
     Dosage: UNK UNK, QOW
     Dates: start: 2019, end: 2019

REACTIONS (3)
  - Pain [Not Recovered/Not Resolved]
  - Stress fracture [Not Recovered/Not Resolved]
  - Plantar fasciitis [Not Recovered/Not Resolved]
